FAERS Safety Report 4360354-1 (Version None)
Quarter: 2004Q2

REPORT INFORMATION
  Report Type: 
  Country: None (occurrence: None)
  Receive Date: 20040514
  Receipt Date: 20040507
  Transmission Date: 20050107
  Serious: Yes (Hospitalization)
  Sender: FDA-Public Use
  Company Number: 2004PK00815

PATIENT
  Age: 75 Year
  Sex: Male
  Weight: 93 kg

DRUGS (6)
  1. METOPROLOL SUCCINATE [Suspect]
     Indication: HYPERTENSION
     Dosage: 95 MG DAILY PO
     Route: 048
     Dates: start: 19960101, end: 20031121
  2. DENAN [Concomitant]
  3. DOXAZOMERCK [Concomitant]
  4. KARVEZIDE [Concomitant]
  5. NIVADIL [Concomitant]
  6. VIOXX [Concomitant]

REACTIONS (3)
  - BRADYCARDIA [None]
  - DYSPNOEA [None]
  - RESTLESSNESS [None]
